FAERS Safety Report 8989067 (Version 1)
Quarter: 2012Q4

REPORT INFORMATION
  Report Type: 
  Country: GB (occurrence: GB)
  Receive Date: 20121228
  Receipt Date: 20121228
  Transmission Date: 20130627
  Serious: Yes (Other)
  Sender: FDA-Public Use
  Company Number: GB-ELI_LILLY_AND_COMPANY-GB201212005360

PATIENT
  Age: 48 Year
  Sex: Female

DRUGS (4)
  1. OLANZAPINE [Suspect]
     Dosage: 17.5 mg, unknown
     Route: 048
     Dates: end: 201106
  2. QUETIAPINE [Concomitant]
     Indication: PSYCHOTIC DISORDER
     Dosage: 300 mg, unknown
     Route: 048
     Dates: start: 201108, end: 201112
  3. MOVICOL [Concomitant]
     Indication: CONSTIPATION
     Dosage: 1 DF, UNK
     Route: 048
  4. SOLIFENACIN [Concomitant]
     Indication: URGE INCONTINENCE
     Dosage: 5 mg, unknown
     Route: 048

REACTIONS (2)
  - Demyelination [Unknown]
  - Multiple sclerosis [Unknown]
